FAERS Safety Report 13864498 (Version 2)
Quarter: 2017Q3

REPORT INFORMATION
  Report Type: Report from Study
  Country: NG (occurrence: NG)
  Receive Date: 20170814
  Receipt Date: 20170817
  Transmission Date: 20171127
  Serious: Yes (Other)
  Sender: FDA-Public Use
  Company Number: NG-PFIZER INC-2017349157

PATIENT
  Age: 64 Year
  Sex: Female

DRUGS (3)
  1. MINIPLUS [Concomitant]
     Dosage: UNK UNK, DAILY
  2. NORVASC [Suspect]
     Active Substance: AMLODIPINE BESYLATE
     Indication: HYPERTENSION
     Dosage: 10 MG, 1X/DAY
  3. MALDOX [Concomitant]
     Dosage: UNK

REACTIONS (2)
  - Headache [Unknown]
  - Drug intolerance [Unknown]
